FAERS Safety Report 16129880 (Version 2)
Quarter: 2019Q1

REPORT INFORMATION
  Report Type: Report from Study
  Country: None (occurrence: TN)
  Receive Date: 20190328
  Receipt Date: 20190331
  Transmission Date: 20190418
  Serious: Yes (Hospitalization)
  Sender: FDA-Public Use
  Company Number: TN-ABBVIE-19K-160-2717603-00

PATIENT
  Sex: Male

DRUGS (8)
  1. HUMIRA [Suspect]
     Active Substance: ADALIMUMAB
     Dosage: 1 WEEK AFTER THE INTERRUPTION
     Route: 058
     Dates: start: 201807, end: 201808
  2. HUMIRA [Suspect]
     Active Substance: ADALIMUMAB
     Route: 058
     Dates: start: 20190311
  3. ALLERGICA [Concomitant]
     Indication: SEASONAL ALLERGY
  4. HUMIRA [Suspect]
     Active Substance: ADALIMUMAB
     Route: 058
     Dates: end: 201807
  5. ALLERGICA [Concomitant]
     Indication: DUST ALLERGY
     Dosage: WHEN NECESSARY
  6. HUMIRA [Suspect]
     Active Substance: ADALIMUMAB
     Dosage: LOADING DOSE
     Route: 058
     Dates: start: 201806, end: 201806
  7. HUMIRA [Suspect]
     Active Substance: ADALIMUMAB
     Route: 058
     Dates: start: 201808, end: 20190218
  8. HUMIRA [Suspect]
     Active Substance: ADALIMUMAB
     Indication: CROHN^S DISEASE
     Dosage: LOADING DOSE
     Route: 058
     Dates: start: 20180609, end: 20180609

REACTIONS (6)
  - Pus in stool [Recovering/Resolving]
  - Gastrointestinal inflammation [Recovering/Resolving]
  - Anal fissure [Recovering/Resolving]
  - Anal abscess [Recovering/Resolving]
  - Influenza [Not Recovered/Not Resolved]
  - Abscess intestinal [Recovering/Resolving]
